FAERS Safety Report 14531282 (Version 2)
Quarter: 2018Q2

REPORT INFORMATION
  Report Type: Spontaneous
  Country: US (occurrence: US)
  Receive Date: 20180214
  Receipt Date: 20180504
  Transmission Date: 20180711
  Serious: Yes (Other)
  Sender: FDA-Public Use
  Company Number: US-JNJFOC-20180210970

PATIENT
  Sex: Female
  Weight: 105.24 kg

DRUGS (5)
  1. STELARA [Suspect]
     Active Substance: USTEKINUMAB
     Indication: PSORIASIS
     Route: 058
  2. GLIPIZIDE. [Concomitant]
     Active Substance: GLIPIZIDE
     Route: 065
  3. ADVAIR HFA [Concomitant]
     Active Substance: FLUTICASONE PROPIONATE\SALMETEROL XINAFOATE
     Route: 065
  4. TRESIBA [Concomitant]
     Active Substance: INSULIN DEGLUDEC
     Route: 065
  5. VICTOZA [Concomitant]
     Active Substance: LIRAGLUTIDE
     Route: 065

REACTIONS (2)
  - Toe amputation [Unknown]
  - Drug dose omission [Unknown]

NARRATIVE: CASE EVENT DATE: 2017
